FAERS Safety Report 19803646 (Version 1)
Quarter: 2021Q3

REPORT INFORMATION
  Report Type: Spontaneous
  Country: US (occurrence: US)
  Receive Date: 20210908
  Receipt Date: 20210908
  Transmission Date: 20211014
  Serious: Yes (Hospitalization)
  Sender: FDA-Public Use
  Company Number: None

PATIENT
  Age: 59 Year
  Sex: Male
  Weight: 61 kg

DRUGS (4)
  1. BREYANZI [Suspect]
     Active Substance: LISOCABTAGENE MARALEUCEL
     Indication: DIFFUSE LARGE B-CELL LYMPHOMA
     Dosage: ?          OTHER FREQUENCY:ONCE;?
     Route: 042
     Dates: start: 20210831, end: 20210831
  2. KEPPRA [Concomitant]
     Active Substance: LEVETIRACETAM
     Dates: start: 20210904, end: 20210908
  3. DEXAMETHASONE. [Concomitant]
     Active Substance: DEXAMETHASONE
     Dates: start: 20210905, end: 20210908
  4. ACTEMRA [Concomitant]
     Active Substance: TOCILIZUMAB
     Dates: start: 20210905, end: 20210906

REACTIONS (4)
  - Seizure [None]
  - Hypotension [None]
  - Tachycardia [None]
  - Pyrexia [None]

NARRATIVE: CASE EVENT DATE: 20210904
